FAERS Safety Report 5452964-5 (Version None)
Quarter: 2007Q3

REPORT INFORMATION
  Report Type: 
  Country: None (occurrence: None)
  Receive Date: 20070914
  Receipt Date: 20070904
  Transmission Date: 20080115
  Serious: Yes (Congenital Anomaly, Other)
  Sender: FDA-Public Use
  Company Number: US-PFIZER INC-2006106155

PATIENT
  Sex: Male

DRUGS (3)
  1. NELFINAVIR MESILATE [Suspect]
  2. DIDANOSINE [Suspect]
  3. STAVUDINE [Suspect]

REACTIONS (2)
  - DRUG EXPOSURE DURING PREGNANCY [None]
  - HYPOSPADIAS [None]
